FAERS Safety Report 14869175 (Version 1)
Quarter: 2018Q2

REPORT INFORMATION
  Report Type: Spontaneous
  Country: FR (occurrence: FR)
  Receive Date: 20180509
  Receipt Date: 20180509
  Transmission Date: 20180711
  Serious: Yes (Hospitalization, Other)
  Sender: FDA-Public Use
  Company Number: FR-AUROBINDO-AUR-APL-2018-024695

PATIENT
  Age: 94 Year
  Sex: Male

DRUGS (4)
  1. PARACETAMOL [Suspect]
     Active Substance: ACETAMINOPHEN
     Indication: PYREXIA
     Dosage: 3 GRAM, ONCE A DAY
     Route: 040
     Dates: start: 20180307, end: 20180309
  2. PANTOPRAZOLE [Suspect]
     Active Substance: PANTOPRAZOLE
     Indication: ULCER
     Dosage: 40 MILLIGRAM, ONCE A DAY
     Route: 040
     Dates: start: 201802
  3. PIPERACILLINE /00502401/ [Suspect]
     Active Substance: PIPERACILLIN
     Indication: SEPSIS
     Dosage: 12 GRAM, ONCE A DAY
     Route: 041
     Dates: start: 20180307, end: 20180311
  4. TAZOBACTAM [Suspect]
     Active Substance: TAZOBACTAM
     Indication: SEPSIS
     Dosage: 12 GRAM, ONCE A DAY
     Route: 041
     Dates: start: 20180307, end: 20180311

REACTIONS (1)
  - Cholestasis [Recovered/Resolved]

NARRATIVE: CASE EVENT DATE: 20180310
